FAERS Safety Report 12216965 (Version 1)
Quarter: 2016Q1

REPORT INFORMATION
  Report Type: Spontaneous
  Country: BR (occurrence: BR)
  Receive Date: 20160329
  Receipt Date: 20160329
  Transmission Date: 20160526
  Serious: Yes (Hospitalization)
  Sender: FDA-Public Use
  Company Number: BR-BAYER-2016-052673

PATIENT
  Age: 55 Year
  Sex: Male

DRUGS (2)
  1. INSULIN [Concomitant]
     Active Substance: INSULIN NOS
     Indication: TYPE 2 DIABETES MELLITUS
  2. CIPRO [Suspect]
     Active Substance: CIPROFLOXACIN HYDROCHLORIDE
     Indication: URINARY TRACT INFECTION
     Dosage: 500 MG, BID
     Route: 048

REACTIONS (6)
  - Erosive oesophagitis [Recovering/Resolving]
  - Condition aggravated [Recovering/Resolving]
  - Weight decreased [Recovering/Resolving]
  - Oesophageal candidiasis [Recovering/Resolving]
  - Dysphagia [Recovering/Resolving]
  - Bacterial toxaemia [Recovering/Resolving]
